FAERS Safety Report 7774766-7 (Version None)
Quarter: 2011Q3

REPORT INFORMATION
  Report Type: 
  Country: None (occurrence: None)
  Receive Date: 20110923
  Receipt Date: 20110915
  Transmission Date: 20111222
  Serious: Yes (Hospitalization)
  Sender: FDA-Public Use
  Company Number: US-ACTELION-A-US2011-54121

PATIENT

DRUGS (2)
  1. TRACLEER [Suspect]
     Indication: PULMONARY ARTERIAL HYPERTENSION
     Dosage: UNK
     Route: 048
     Dates: start: 20110624
  2. TYLENOL W/ CODEINE [Concomitant]

REACTIONS (5)
  - TRANSFUSION [None]
  - HAEMATOCRIT DECREASED [None]
  - UNRESPONSIVE TO STIMULI [None]
  - PNEUMONIA [None]
  - LIGAMENT SPRAIN [None]
